FAERS Safety Report 8309453-X (Version None)
Quarter: 2012Q2

REPORT INFORMATION
  Report Type: 
  Country: None (occurrence: None)
  Receive Date: 20120425
  Receipt Date: 20120416
  Transmission Date: 20120825
  Serious: Yes (Death, Hospitalization)
  Sender: FDA-Public Use
  Company Number: JP-CELGENEUS-087-50794-12042413

PATIENT
  Sex: Female
  Weight: 40 kg

DRUGS (42)
  1. PRIMPERAN TAB [Concomitant]
     Route: 065
     Dates: start: 20111005, end: 20111106
  2. P N TWIN-2 [Concomitant]
     Route: 065
     Dates: start: 20120211, end: 20120211
  3. ALBUMIN (HUMAN) [Concomitant]
     Route: 065
     Dates: start: 20120303, end: 20120310
  4. VIDAZA [Suspect]
     Dosage: 75 MILLIGRAM/SQ. METER
     Route: 041
     Dates: start: 20110926, end: 20110930
  5. IRSOGLADINE MALEATE [Concomitant]
     Route: 065
  6. GRAN [Concomitant]
     Route: 065
     Dates: start: 20120202, end: 20120224
  7. EMEND [Concomitant]
     Route: 065
     Dates: start: 20110921, end: 20110921
  8. ALOXI [Concomitant]
     Route: 065
     Dates: start: 20120123, end: 20120123
  9. MINOCYCLINE HYDROCHLORIDE [Concomitant]
     Route: 065
     Dates: start: 20120306, end: 20120310
  10. VIDAZA [Suspect]
     Dosage: 75 MILLIGRAM/SQ. METER
     Route: 041
     Dates: start: 20111124, end: 20111125
  11. VIDAZA [Suspect]
     Dosage: 75 MILLIGRAM/SQ. METER
     Route: 041
     Dates: start: 20120130, end: 20120131
  12. AMSULMYLAN [Concomitant]
     Route: 065
     Dates: start: 20111004, end: 20111010
  13. MAXIPIME [Concomitant]
     Route: 065
     Dates: start: 20111128
  14. P N TWIN-1 [Concomitant]
     Route: 065
     Dates: start: 20120210, end: 20120210
  15. HICALIQ RF [Concomitant]
     Route: 065
     Dates: start: 20120303, end: 20120310
  16. VIDAZA [Suspect]
     Dosage: 75 MILLIGRAM/SQ. METER
     Route: 058
     Dates: start: 20110921, end: 20110921
  17. TPN ELECTROLYTES IN PLASTIC CONTAINER [Concomitant]
     Route: 065
     Dates: start: 20120123, end: 20120210
  18. CEFOTIAM HYDROCHLORIDE [Concomitant]
     Route: 065
     Dates: start: 20111118, end: 20111127
  19. AMLODIPINE [Concomitant]
     Route: 065
  20. URSO 250 [Concomitant]
     Route: 065
  21. ZOSYN [Concomitant]
     Route: 065
     Dates: start: 20120211, end: 20120215
  22. LEVOFLOXACIN [Concomitant]
     Route: 065
     Dates: start: 20120215, end: 20120217
  23. AMIKACIN SULFATE [Concomitant]
     Route: 065
     Dates: start: 20120218, end: 20120302
  24. VIDAZA [Suspect]
     Dosage: 75 MILLIGRAM/SQ. METER
     Route: 041
     Dates: start: 20110922, end: 20110922
  25. VIDAZA [Suspect]
     Dosage: 75 MILLIGRAM/SQ. METER
     Route: 041
     Dates: start: 20120123, end: 20120127
  26. DEXAMETHASONE SODIUM PHOSPHATE [Concomitant]
     Route: 065
     Dates: start: 20120123, end: 20120123
  27. GASMOTIN [Concomitant]
     Route: 065
  28. SENNA-MINT WAF [Concomitant]
     Route: 065
     Dates: start: 20110927
  29. DAIKENCHUTO [Concomitant]
     Route: 065
     Dates: start: 20110927
  30. DORIPENEM MONOHYDRATE [Concomitant]
     Route: 065
     Dates: start: 20120127, end: 20120210
  31. VANCOMYCIN HYDROCHLORIDE [Concomitant]
     Route: 065
     Dates: start: 20120302, end: 20120304
  32. VIDAZA [Suspect]
     Dosage: 75 MILLIGRAM/SQ. METER
     Route: 041
     Dates: start: 20111128, end: 20111202
  33. TPN ELECTROLYTES IN PLASTIC CONTAINER [Concomitant]
     Route: 065
     Dates: start: 20110929, end: 20111106
  34. KYTRIL [Concomitant]
     Route: 065
     Dates: start: 20110921, end: 20110921
  35. P N TWIN-3 [Concomitant]
     Route: 065
     Dates: start: 20120212, end: 20120304
  36. FUNGUARD [Concomitant]
     Route: 065
     Dates: start: 20120210, end: 20120304
  37. MAXIPIME [Concomitant]
     Route: 065
     Dates: start: 20120218, end: 20120302
  38. FLUMARIN [Concomitant]
     Route: 065
     Dates: end: 20120127
  39. DEXAMETHASONE SODIUM PHOSPHATE [Concomitant]
     Route: 065
     Dates: start: 20110921, end: 20110921
  40. CARBENIN [Concomitant]
     Route: 065
     Dates: start: 20110927, end: 20111004
  41. CLINDAMYCIN [Concomitant]
     Route: 065
     Dates: start: 20111004, end: 20111010
  42. GRAN [Concomitant]
     Route: 065
     Dates: start: 20111120, end: 20111124

REACTIONS (3)
  - FEBRILE NEUTROPENIA [None]
  - SEPSIS [None]
  - C-REACTIVE PROTEIN INCREASED [None]
